FAERS Safety Report 14388433 (Version 1)
Quarter: 2018Q1

REPORT INFORMATION
  Report Type: Report from Study
  Country: AU (occurrence: AU)
  Receive Date: 20180115
  Receipt Date: 20180115
  Transmission Date: 20180509
  Serious: Yes (Hospitalization)
  Sender: FDA-Public Use
  Company Number: AU-MYLANLABS-2018M1003229

PATIENT
  Age: 36 Year
  Sex: Male

DRUGS (1)
  1. EMTRICITABINE,TENOFOVIR MYLAN [Suspect]
     Active Substance: EMTRICITABINE\TENOFOVIR
     Indication: PRODUCT USED FOR UNKNOWN INDICATION
     Dosage: 1T OD
     Route: 048
     Dates: start: 20170101

REACTIONS (1)
  - Atrial fibrillation [Recovered/Resolved]

NARRATIVE: CASE EVENT DATE: 20171116
